FAERS Safety Report 8106128 (Version 3)
Quarter: 2013Q4

REPORT INFORMATION
  Report Type: Spontaneous
  Country: US (occurrence: US)
  Receive Date: 20110825
  Receipt Date: 20131202
  Transmission Date: 20140711
  Serious: Yes (Hospitalization, Other)
  Sender: FDA-Public Use
  Company Number: US-BAYER-2011-075368

PATIENT
  Age: 27 Year
  Sex: Female
  Weight: 94.33 kg

DRUGS (4)
  1. YAZ [Suspect]
     Indication: CONTRACEPTION
     Dosage: UNK
     Dates: start: 201001, end: 201006
  2. EFFEXOR XR [Concomitant]
     Dosage: 37.5 MG, UNK
  3. PREVPAC [Concomitant]
  4. IBUPROFEN [Concomitant]
     Dosage: 600 MG, UNK

REACTIONS (2)
  - Gallbladder injury [None]
  - Cholecystitis chronic [None]
